FAERS Safety Report 6802222-9 (Version None)
Quarter: 2010Q2

REPORT INFORMATION
  Report Type: 
  Country: None (occurrence: None)
  Receive Date: 20100628
  Receipt Date: 20100621
  Transmission Date: 20101027
  Serious: Yes (Hospitalization)
  Sender: FDA-Public Use
  Company Number: US-BIOGENIDEC-2009BI029728

PATIENT
  Sex: Male
  Weight: 97 kg

DRUGS (9)
  1. TYSABRI [Suspect]
     Indication: MULTIPLE SCLEROSIS
     Route: 042
     Dates: start: 20070403
  2. TYSABRI [Suspect]
     Route: 042
     Dates: start: 20041222, end: 20050216
  3. ACTOS [Concomitant]
  4. DOXAZOSIN MESYLATE [Concomitant]
  5. GLIPIZIDE [Concomitant]
  6. LISINOPRIL [Concomitant]
  7. LASIX [Concomitant]
  8. ZOCOR [Concomitant]
  9. ADVAIR DISKUS 100/50 [Concomitant]

REACTIONS (6)
  - ASTHENIA [None]
  - ASTHMA [None]
  - DIABETES MELLITUS INADEQUATE CONTROL [None]
  - LOSS OF CONTROL OF LEGS [None]
  - MUSCLE ATROPHY [None]
  - MYOCARDIAL INFARCTION [None]
